FAERS Safety Report 4554608-3 (Version None)
Quarter: 2005Q1

REPORT INFORMATION
  Report Type: 
  Country: None (occurrence: None)
  Receive Date: 20050118
  Receipt Date: 20041208
  Transmission Date: 20050727
  Serious: Yes (Other)
  Sender: FDA-Public Use
  Company Number: PHEH2004US13336

PATIENT
  Age: 43 Year
  Sex: Female
  Weight: 93 kg

DRUGS (18)
  1. ZELNORM [Suspect]
     Indication: IRRITABLE BOWEL SYNDROME
     Dosage: 6 MG, BID
     Route: 048
     Dates: start: 20040903, end: 20040930
  2. ZELNORM [Suspect]
     Dosage: 6 MG, TID
     Route: 048
     Dates: start: 20041001, end: 20041020
  3. ADVIL [Concomitant]
     Indication: HYPERSENSITIVITY
  4. IMITREX [Concomitant]
     Indication: MIGRAINE
  5. CELEXA [Concomitant]
     Indication: DEPRESSION
  6. ESTRADIOL [Concomitant]
     Indication: OESTROGEN THERAPY
  7. MAXALT /USA/ [Concomitant]
     Indication: MIGRAINE
  8. ACIPHEX [Concomitant]
     Indication: GASTROOESOPHAGEAL REFLUX DISEASE
  9. ALPRAZOLAM [Concomitant]
     Indication: INSOMNIA
  10. DICYCLOMINE [Concomitant]
     Indication: ABDOMINAL PAIN
     Dates: start: 20000919
  11. SONATA [Concomitant]
     Indication: INSOMNIA
  12. MAXAIR [Concomitant]
     Indication: ASTHMA
  13. NASONEX [Concomitant]
     Indication: ASTHMA
  14. ACIDOPHILUS [Concomitant]
     Indication: IRRITABLE BOWEL SYNDROME
  15. CITRUCEL [Concomitant]
  16. MIRALAX [Concomitant]
     Indication: CONSTIPATION
  17. MILK OF MAGNESIA [Concomitant]
     Indication: CONSTIPATION
  18. ENEMAS [Concomitant]

REACTIONS (4)
  - ADENOMA BENIGN [None]
  - COLONIC POLYP [None]
  - HAEMORRHOIDS [None]
  - POLYPECTOMY [None]
